FAERS Safety Report 19791261 (Version 1)
Quarter: 2021Q3

REPORT INFORMATION
  Report Type: Other
  Country: DE (occurrence: DE)
  Receive Date: 20210906
  Receipt Date: 20210906
  Transmission Date: 20211014
  Serious: Yes (Other)
  Sender: FDA-Public Use
  Company Number: DE-ROCHE-2266873

PATIENT
  Age: 50 Year
  Sex: Female

DRUGS (9)
  1. OCREVUS [Suspect]
     Active Substance: OCRELIZUMAB
     Route: 042
     Dates: start: 20210203
  2. CANDESARTAN. [Concomitant]
     Active Substance: CANDESARTAN
     Dosage: 16/12.5, 8/6.25 AND 3/6.25.
  3. BETMIGA [Concomitant]
     Active Substance: MIRABEGRON
  4. OCREVUS [Suspect]
     Active Substance: OCRELIZUMAB
     Indication: RELAPSING-REMITTING MULTIPLE SCLEROSIS
     Route: 042
     Dates: start: 20180717
  5. BLACK CUMIN [Concomitant]
  6. COMIRNATY [Suspect]
     Active Substance: TOZINAMERAN
     Indication: COVID-19
     Dosage: SUBSEQUENT DOSE ON 19/MAY/2021
     Route: 065
     Dates: start: 20210414
  7. OCREVUS [Suspect]
     Active Substance: OCRELIZUMAB
     Route: 042
     Dates: start: 20200728
  8. L?THYROXIN [Concomitant]
     Active Substance: LEVOTHYROXINE SODIUM
  9. HCT [Concomitant]
     Active Substance: HYDROCHLOROTHIAZIDE

REACTIONS (18)
  - Oedema [Recovering/Resolving]
  - Lip disorder [Recovering/Resolving]
  - Aphasia [Recovered/Resolved]
  - Myalgia [Recovered/Resolved]
  - Noninfective gingivitis [Recovering/Resolving]
  - Gingivitis [Recovered/Resolved]
  - Therapeutic product effect decreased [Unknown]
  - Glossodynia [Recovered/Resolved]
  - Back pain [Recovered/Resolved]
  - Fatigue [Recovered/Resolved]
  - Fatigue [Recovered/Resolved]
  - Fatigue [Recovered/Resolved]
  - Purulence [Recovered/Resolved]
  - Neck pain [Recovered/Resolved]
  - Asthenia [Recovering/Resolving]
  - Hypertension [Recovered/Resolved]
  - Headache [Recovered/Resolved]
  - Slow speech [Recovered/Resolved]

NARRATIVE: CASE EVENT DATE: 201901
